FAERS Safety Report 6822811-5 (Version None)
Quarter: 2010Q3

REPORT INFORMATION
  Report Type: 
  Country: None (occurrence: None)
  Receive Date: 20100706
  Receipt Date: 20100706
  Transmission Date: 20110219
  Serious: Yes (Other)
  Sender: FDA-Public Use
  Company Number: None

PATIENT
  Sex: Male

DRUGS (1)
  1. DOXORUBICIN LIPOSOMAL 2 MG/ML ORTHO BIOTECH [Suspect]
     Indication: CHEMOTHERAPY
     Dosage: 50 ML/HR IV
     Route: 042
     Dates: start: 20100503, end: 20100503

REACTIONS (2)
  - ARTHRALGIA [None]
  - BACK PAIN [None]
